FAERS Safety Report 8762856 (Version 1)
Quarter: 2012Q4

REPORT INFORMATION
  Report Type: 
  Country: US (occurrence: US)
  Receive Date: 20120828
  Receipt Date: 20120828
  Transmission Date: 20130627
  Serious: No
  Sender: FDA-Public Use
  Company Number: US-PFIZER INC-2012208876

PATIENT

DRUGS (1)
  1. ZITHROMAX [Suspect]
     Indication: LYME DISEASE
     Dosage: UNK

REACTIONS (1)
  - Tooth discolouration [Unknown]
